FAERS Safety Report 5926906-X (Version None)
Quarter: 2008Q4

REPORT INFORMATION
  Report Type: 
  Country: None (occurrence: None)
  Receive Date: 20081014
  Receipt Date: 20081010
  Transmission Date: 20090506
  Serious: Yes (Hospitalization)
  Sender: FDA-Public Use
  Company Number: 200814149

PATIENT
  Age: 69 Year
  Sex: Male
  Weight: 93 kg

DRUGS (17)
  1. VIVAGLOBIN [Suspect]
     Indication: IMMUNODEFICIENCY COMMON VARIABLE
  2. FLONASE [Concomitant]
  3. MULTI-VITAMIN [Concomitant]
  4. KEPPRA [Concomitant]
  5. AMITRIPTYLINE HCL [Concomitant]
  6. FISH OIL [Concomitant]
  7. COMBIVENT [Concomitant]
  8. LORATADINE [Concomitant]
  9. AEROBID [Concomitant]
  10. PRILOSEC [Concomitant]
  11. SINGULAIR [Concomitant]
  12. GUAIFENESIN [Concomitant]
  13. DIHYDROERGOTAMINE MESYLATE [Concomitant]
  14. ZANAFLEX [Concomitant]
  15. CRESTOR [Concomitant]
  16. DOXYCYCLINE [Concomitant]
  17. AMLODIPINE [Concomitant]

REACTIONS (1)
  - DEEP VEIN THROMBOSIS [None]
